FAERS Safety Report 9225961 (Version 1)
Quarter: 2013Q2

REPORT INFORMATION
  Report Type: Spontaneous
  Country: US (occurrence: US)
  Receive Date: 20130411
  Receipt Date: 20130411
  Transmission Date: 20140414
  Serious: No
  Sender: FDA-Public Use
  Company Number: US-ASTELLAS-2012US012153

PATIENT
  Sex: Female

DRUGS (5)
  1. PROTOPIC [Suspect]
     Indication: DERMATITIS ATOPIC
     Dosage: UNK
     Route: 061
     Dates: start: 20121128
  2. SIMVASTATIN [Concomitant]
     Indication: PRODUCT USED FOR UNKNOWN INDICATION
     Dosage: UNK
     Route: 065
  3. ZYRETIC [Concomitant]
     Indication: PRODUCT USED FOR UNKNOWN INDICATION
     Dosage: UNK
     Route: 065
  4. PREDNISONE [Concomitant]
     Indication: PRODUCT USED FOR UNKNOWN INDICATION
     Dosage: UNK
     Route: 048
  5. TRIAMCINOLONE [Concomitant]
     Indication: PRODUCT USED FOR UNKNOWN INDICATION
     Dosage: 0.1 %, BID
     Route: 061

REACTIONS (4)
  - Drug ineffective [Unknown]
  - Swelling face [Recovered/Resolved]
  - Erythema [Unknown]
  - Pruritus [Unknown]
